FAERS Safety Report 18205846 (Version 3)
Quarter: 2020Q4

REPORT INFORMATION
  Report Type: Report from Study
  Country: None (occurrence: US)
  Receive Date: 20200828
  Receipt Date: 20201106
  Transmission Date: 20210113
  Serious: Yes (Hospitalization, Other)
  Sender: FDA-Public Use
  Company Number: US-ABBVIE-20K-163-3540024-00

PATIENT
  Age: 26 Year
  Sex: Male
  Weight: 54.48 kg

DRUGS (6)
  1. HUMIRA [Suspect]
     Active Substance: ADALIMUMAB
     Indication: CROHN^S DISEASE
     Dosage: DAY 29
     Route: 058
     Dates: start: 20190206
  2. DILAUDID [Concomitant]
     Active Substance: HYDROMORPHONE HYDROCHLORIDE
     Indication: PAIN
  3. HUMIRA [Suspect]
     Active Substance: ADALIMUMAB
     Dosage: DAY 15
     Route: 058
     Dates: start: 20190123, end: 20190123
  4. HUMIRA [Suspect]
     Active Substance: ADALIMUMAB
     Indication: CROHN^S DISEASE
     Dosage: DAY 1
     Route: 058
     Dates: start: 20190109, end: 20190109
  5. HUMIRA [Suspect]
     Active Substance: ADALIMUMAB
     Route: 058
     Dates: start: 20200501, end: 202006
  6. HUMIRA [Suspect]
     Active Substance: ADALIMUMAB
     Route: 058
     Dates: start: 20200715

REACTIONS (9)
  - Anxiety [Recovered/Resolved]
  - Small intestinal stenosis [Recovered/Resolved]
  - Appendicectomy [Unknown]
  - Crohn^s disease [Recovering/Resolving]
  - Device issue [Unknown]
  - Injection site urticaria [Recovered/Resolved]
  - Large intestinal stenosis [Recovered/Resolved]
  - Small intestinal stenosis [Recovering/Resolving]
  - Injection site swelling [Recovered/Resolved]

NARRATIVE: CASE EVENT DATE: 2020
